FAERS Safety Report 14835574 (Version 1)
Quarter: 2018Q2

REPORT INFORMATION
  Report Type: Report from Study
  Country: US (occurrence: US)
  Receive Date: 20180502
  Receipt Date: 20180502
  Transmission Date: 20180711
  Serious: Yes (Other)
  Sender: FDA-Public Use
  Company Number: US-BIOGEN-2018BI00566735

PATIENT
  Sex: Female

DRUGS (1)
  1. TYSABRI [Suspect]
     Active Substance: NATALIZUMAB
     Indication: MULTIPLE SCLEROSIS
     Route: 065
     Dates: start: 20120813, end: 20170710

REACTIONS (6)
  - Blindness unilateral [Recovered/Resolved]
  - Memory impairment [Unknown]
  - Central nervous system lesion [Not Recovered/Not Resolved]
  - Musculoskeletal disorder [Recovered/Resolved]
  - Multiple sclerosis [Unknown]
  - Gait disturbance [Recovered/Resolved]
